FAERS Safety Report 8649773 (Version 6)
Quarter: 2014Q1

REPORT INFORMATION
  Report Type: Report from Study
  Country: JP (occurrence: JP)
  Receive Date: 20120705
  Receipt Date: 20140203
  Transmission Date: 20141002
  Serious: Yes (Hospitalization)
  Sender: FDA-Public Use
  Company Number: JP-PFIZER INC-2012156422

PATIENT
  Age: 50 Year
  Sex: Female
  Weight: 42.8 kg

DRUGS (11)
  1. XALKORI [Suspect]
     Indication: NON-SMALL CELL LUNG CANCER
     Dosage: 250 MG, 2X/DAY
     Route: 048
     Dates: start: 20120516, end: 20120523
  2. LYRICA [Concomitant]
     Dosage: 75 MG, 2X/DAY
     Route: 048
  3. LOXOPROFEN [Concomitant]
     Dosage: 50 MG, 3X/DAY
     Route: 048
  4. TEPRENONE [Concomitant]
     Dosage: 50 MG, 3X/DAY
     Route: 048
  5. DEPAS [Concomitant]
     Dosage: 0.5 MG, 3X/DAY
     Route: 048
  6. LENDORMIN D [Concomitant]
     Dosage: 0.25 MG, 1X/DAY
     Route: 048
  7. RIVOTRIL [Concomitant]
     Dosage: 0.5 MG, 1X/DAY
     Route: 048
  8. MAGMITT [Concomitant]
     Dosage: 250 MG, 3X/DAY
     Route: 048
     Dates: start: 20120521, end: 20120530
  9. PARIET [Concomitant]
     Dosage: 10 MG, 1X/DAY
     Route: 048
     Dates: start: 20120522, end: 20120530
  10. UNASYN S [Concomitant]
     Dosage: 3 G, 3X/DAY
     Route: 042
     Dates: start: 20120523, end: 20120528
  11. RELENZA [Concomitant]
     Indication: INFLUENZA
     Dosage: 10 MG, 2X/DAY
     Dates: start: 20120524, end: 20120524

REACTIONS (1)
  - Interstitial lung disease [Recovered/Resolved]
